FAERS Safety Report 10339855 (Version 1)
Quarter: 2014Q3

REPORT INFORMATION
  Report Type: Spontaneous
  Country: US (occurrence: None)
  Receive Date: 20140723
  Receipt Date: 20140723
  Transmission Date: 20150326
  Serious: Yes (Other)
  Sender: FDA-Public Use
  Company Number: None

PATIENT
  Age: 70 Year
  Sex: Female
  Weight: 108.86 kg

DRUGS (1)
  1. HYDROXYCHLOROQUINE 200 MG [Suspect]
     Active Substance: HYDROXYCHLOROQUINE
     Indication: ARTHRITIS
     Dosage: 1

REACTIONS (2)
  - Cognitive disorder [None]
  - Dysarthria [None]
